FAERS Safety Report 6984553-5 (Version None)
Quarter: 2010Q3

REPORT INFORMATION
  Report Type: 
  Country: None (occurrence: None)
  Receive Date: 20100915
  Receipt Date: 20100903
  Transmission Date: 20110219
  Serious: Yes (Other)
  Sender: FDA-Public Use
  Company Number: NL-PFIZER INC-2010110560

PATIENT
  Age: 76 Year
  Sex: Male

DRUGS (1)
  1. ECALTA [Suspect]
     Indication: SYSTEMIC MYCOSIS
     Dosage: UNK

REACTIONS (1)
  - DIABETES INSIPIDUS [None]
